FAERS Safety Report 6928939-3 (Version None)
Quarter: 2010Q3

REPORT INFORMATION
  Report Type: 
  Country: None (occurrence: None)
  Receive Date: 20100817
  Receipt Date: 20100817
  Transmission Date: 20110219
  Serious: Yes (Hospitalization)
  Sender: FDA-Public Use
  Company Number: US-CEPHALON-2010003906

PATIENT
  Sex: Female
  Weight: 76 kg

DRUGS (2)
  1. TREANDA [Suspect]
     Indication: MANTLE CELL LYMPHOMA
     Route: 042
     Dates: start: 20090928, end: 20100504
  2. RITUXAN [Concomitant]
     Indication: MANTLE CELL LYMPHOMA
     Route: 042
     Dates: end: 20100503

REACTIONS (1)
  - TOXOPLASMOSIS [None]
